FAERS Safety Report 24673323 (Version 1)
Quarter: 2024Q4

REPORT INFORMATION
  Report Type: Spontaneous
  Country: US (occurrence: US)
  Receive Date: 20241128
  Receipt Date: 20241128
  Transmission Date: 20250115
  Serious: No
  Sender: IBSA INSTITUT BIOCHIMIQUE
  Company Number: US-IBSA PHARMA INC.-2024IBS000442

PATIENT

DRUGS (1)
  1. TIROSINT [Suspect]
     Active Substance: LEVOTHYROXINE SODIUM
     Indication: Hypothyroidism
     Dosage: 44 MICROGRAM, QD
     Dates: start: 20240825

REACTIONS (5)
  - Adverse reaction [Unknown]
  - Somnolence [Unknown]
  - Acne [Unknown]
  - Fatigue [Unknown]
  - Product blister packaging issue [Unknown]
